FAERS Safety Report 9810688 (Version 2)
Quarter: 2015Q1

REPORT INFORMATION
  Report Type: Spontaneous
  Country: US (occurrence: US)
  Receive Date: 20140110
  Receipt Date: 20150312
  Transmission Date: 20150721
  Serious: Yes (Other)
  Sender: FDA-Public Use
  Company Number: US-SA-2013SA098082

PATIENT
  Age: 54 Year

DRUGS (5)
  1. PLAVIX [Suspect]
     Active Substance: CLOPIDOGREL BISULFATE
     Indication: CEREBROVASCULAR ACCIDENT
     Route: 065
     Dates: start: 200703, end: 201109
  2. ASPIRIN. [Concomitant]
     Active Substance: ASPIRIN
  3. PLAVIX [Suspect]
     Active Substance: CLOPIDOGREL BISULFATE
     Indication: STENT PLACEMENT
     Route: 065
     Dates: start: 200703, end: 201109
  4. PLAVIX [Suspect]
     Active Substance: CLOPIDOGREL BISULFATE
     Indication: PERIPHERAL ARTERIAL OCCLUSIVE DISEASE
     Route: 065
     Dates: start: 200703, end: 201109
  5. PLAVIX [Suspect]
     Active Substance: CLOPIDOGREL BISULFATE
     Indication: ACUTE CORONARY SYNDROME
     Route: 065
     Dates: start: 200703, end: 201109

REACTIONS (4)
  - Haemorrhage [Unknown]
  - Gastrointestinal haemorrhage [Not Recovered/Not Resolved]
  - Cardiac disorder [Unknown]
  - Injury [Unknown]

NARRATIVE: CASE EVENT DATE: 20110810
